FAERS Safety Report 11422797 (Version 3)
Quarter: 2015Q4

REPORT INFORMATION
  Report Type: Spontaneous
  Country: AR (occurrence: AR)
  Receive Date: 20150827
  Receipt Date: 20151009
  Transmission Date: 20160304
  Serious: Yes (Hospitalization, Other)
  Sender: FDA-Public Use
  Company Number: AR-JNJFOC-20150815851

PATIENT
  Age: 66 Year
  Sex: Male
  Weight: 75 kg

DRUGS (1)
  1. ZYTIGA [Suspect]
     Active Substance: ABIRATERONE ACETATE
     Indication: PROSTATE CANCER
     Route: 048
     Dates: end: 20150821

REACTIONS (4)
  - Hepatic enzyme increased [Unknown]
  - Vasculitis [Unknown]
  - Rash generalised [Unknown]
  - Drug eruption [Unknown]

NARRATIVE: CASE EVENT DATE: 20150819
